FAERS Safety Report 4528884-7 (Version None)
Quarter: 2004Q4

REPORT INFORMATION
  Report Type: 
  Country: None (occurrence: None)
  Receive Date: 20041214
  Receipt Date: 20041130
  Transmission Date: 20050328
  Serious: Yes (Hospitalization)
  Sender: FDA-Public Use
  Company Number: DEU-2004-0001169

PATIENT
  Age: 73 Year
  Sex: Male
  Weight: 72 kg

DRUGS (8)
  1. PALLADONE [Suspect]
     Indication: CANCER PAIN
     Dosage: 4 MG, BID, ORAL
     Route: 048
     Dates: start: 20041011, end: 20041101
  2. PALLADONE [Suspect]
     Indication: CANCER PAIN
     Dosage: 4 MG, BID, ORAL
     Route: 048
     Dates: start: 20041102
  3. PALLADONE [Suspect]
     Indication: CANCER PAIN
     Dosage: 4 MG, BID, ORAL
     Route: 048
     Dates: start: 20041011, end: 20041101
  4. IBUPROFEN [Concomitant]
  5. DURAGESIC [Concomitant]
  6. DOMPERIDONE MALEATE (DOMPERIDONE MALEATE) [Concomitant]
  7. MOVICOL (MACROGOL, SODIUM CHLORIDE, POTASSIUM CHLORIDE, SODIUM BICARBO [Concomitant]
  8. METAMIZOLE SODIUM [Concomitant]

REACTIONS (1)
  - HOSPITALISATION [None]
